FAERS Safety Report 9362790 (Version 1)
Quarter: 2013Q2

REPORT INFORMATION
  Report Type: Spontaneous
  Country: US (occurrence: US)
  Receive Date: 20130624
  Receipt Date: 20130624
  Transmission Date: 20140414
  Serious: No
  Sender: FDA-Public Use
  Company Number: US-009507513-1306USA008696

PATIENT
  Sex: Male

DRUGS (4)
  1. REBETOL [Suspect]
     Indication: HEPATITIS C
     Dosage: UNK
     Route: 048
     Dates: start: 20120523, end: 20121101
  2. PEG-INTRON [Suspect]
     Indication: HEPATITIS C
     Dosage: REDIPEN
     Dates: start: 20120523, end: 2012
  3. PEG-INTRON [Suspect]
     Dosage: VIALS
     Dates: start: 2012, end: 2012
  4. PEG-INTRON [Suspect]
     Dosage: UNK
     Dates: start: 2012, end: 20121101

REACTIONS (7)
  - White blood cell count decreased [Unknown]
  - Memory impairment [Unknown]
  - Confusional state [Unknown]
  - Ammonia increased [Recovering/Resolving]
  - Hepatic enzyme increased [Recovered/Resolved]
  - Disorientation [Unknown]
  - Disease recurrence [Unknown]
